FAERS Safety Report 10193854 (Version 1)
Quarter: 2014Q2

REPORT INFORMATION
  Report Type: Spontaneous
  Country: US (occurrence: US)
  Receive Date: 20140524
  Receipt Date: 20140524
  Transmission Date: 20141212
  Serious: No
  Sender: FDA-Public Use
  Company Number: US-SANOFI-AVENTIS-2013SA071319

PATIENT
  Sex: Female

DRUGS (4)
  1. LANTUS SOLOSTAR [Suspect]
     Dosage: STOPPED TAKING LANTUS OVER TWO MONTHS AGO
     Route: 051
  2. SOLOSTAR [Suspect]
  3. GLYBURIDE [Suspect]
     Route: 065
  4. ALL OTHER THERAPEUTIC PRODUCTS [Suspect]
     Route: 065

REACTIONS (2)
  - Rash [Unknown]
  - Pruritus [Unknown]
